FAERS Safety Report 20602953 (Version 4)
Quarter: 2023Q4

REPORT INFORMATION
  Report Type: Spontaneous
  Country: JP (occurrence: JP)
  Receive Date: 20220316
  Receipt Date: 20231010
  Transmission Date: 20240109
  Serious: Yes (Death, Other)
  Sender: FDA-Public Use
  Company Number: JP-UNITED THERAPEUTICS-UNT-2022-001146

PATIENT
  Age: 3 Year
  Sex: Female

DRUGS (9)
  1. UNITUXIN [Suspect]
     Active Substance: DINUTUXIMAB
     Indication: Neuroblastoma recurrent
     Dosage: 300 MG/M2, CYCLICAL (CYCLE 1)
     Route: 041
  2. UNITUXIN [Suspect]
     Active Substance: DINUTUXIMAB
     Dosage: 17.5 MG/M2, CYCLICAL (CYCLE 2)
     Route: 041
     Dates: start: 20211221, end: 202112
  3. UNITUXIN [Suspect]
     Active Substance: DINUTUXIMAB
     Dosage: UNK, CYCLICAL (CYCLE 2) (RESTARTED DOSE)
     Route: 041
     Dates: start: 202112
  4. UNITUXIN [Suspect]
     Active Substance: DINUTUXIMAB
     Dosage: 300 MG/M2, CYCLICAL (CYCLE 3)
     Route: 041
  5. UNITUXIN [Suspect]
     Active Substance: DINUTUXIMAB
     Dosage: 300 MG/M2, CYCLICAL (CYCLE 4)
     Route: 041
     Dates: end: 20220307
  6. TECELEUKIN [Suspect]
     Active Substance: TECELEUKIN
     Indication: Neuroblastoma recurrent
     Dosage: 7,000,000 IU/M2, CYCLICAL
     Route: 041
  7. TECELEUKIN [Suspect]
     Active Substance: TECELEUKIN
     Dosage: UNK, CYCLICAL (RESTARTED DOSE )
     Route: 041
     Dates: start: 202112
  8. FILGRASTIM [Concomitant]
     Active Substance: FILGRASTIM
     Indication: Neuroblastoma recurrent
     Dosage: 70 ?G/KG, CYCLICAL
     Route: 065
  9. FILGRASTIM [Concomitant]
     Active Substance: FILGRASTIM
     Dosage: 70 ?G/KG, CYCLICAL
     Route: 065

REACTIONS (8)
  - Neuroblastoma recurrent [Fatal]
  - Capillary permeability increased [Unknown]
  - Oedema [Recovered/Resolved]
  - Pyrexia [Recovered/Resolved]
  - Blood albumin decreased [Recovered/Resolved]
  - Hypotension [Recovered/Resolved]
  - Blood albumin decreased [Recovered/Resolved]
  - Oedema [Recovered/Resolved]

NARRATIVE: CASE EVENT DATE: 20211221
